FAERS Safety Report 11951298 (Version 1)
Quarter: 2016Q1

REPORT INFORMATION
  Report Type: Spontaneous
  Country: US (occurrence: US)
  Receive Date: 20160126
  Receipt Date: 20160126
  Transmission Date: 20160526
  Serious: No
  Sender: FDA-Public Use
  Company Number: US-DEXPHARM-20151939

PATIENT
  Age: 78 Year
  Sex: Female
  Weight: 70.29 kg

DRUGS (5)
  1. LASIX [Concomitant]
     Active Substance: FUROSEMIDE
     Dates: start: 2009
  2. METOPROLOL. [Concomitant]
     Active Substance: METOPROLOL
     Dates: start: 201407
  3. OMEPRAZOLE DELAYED RELEASE [Suspect]
     Active Substance: OMEPRAZOLE
     Indication: GASTROOESOPHAGEAL SPHINCTER INSUFFICIENCY
     Dosage: SINGLE DOSE TWICE
     Route: 048
     Dates: start: 20150726, end: 20150726
  4. ANASTROZOLE. [Concomitant]
     Active Substance: ANASTROZOLE
     Dates: start: 2012
  5. OMEPRAZOLE DELAYED RELEASE [Suspect]
     Active Substance: OMEPRAZOLE
     Indication: GASTROOESOPHAGEAL SPHINCTER INSUFFICIENCY
     Dosage: SINGLE DOSE
     Route: 048
     Dates: start: 20150727, end: 20150727

REACTIONS (2)
  - Pruritus [Not Recovered/Not Resolved]
  - Rash erythematous [Not Recovered/Not Resolved]

NARRATIVE: CASE EVENT DATE: 20150727
